FAERS Safety Report 26109787 (Version 1)
Quarter: 2025Q4

REPORT INFORMATION
  Report Type: Spontaneous
  Country: US (occurrence: US)
  Receive Date: 20251201
  Receipt Date: 20251201
  Transmission Date: 20260117
  Serious: Yes (Other)
  Sender: NOVO NORDISK
  Company Number: US-NOVOPROD-1572571

PATIENT
  Age: 59 Year
  Sex: Female

DRUGS (1)
  1. WEGOVY [Suspect]
     Active Substance: SEMAGLUTIDE
     Indication: Weight control
     Dosage: 0.5 MG QW
     Route: 058

REACTIONS (2)
  - Cataract operation [Recovered/Resolved]
  - Cataract operation [Recovered/Resolved]

NARRATIVE: CASE EVENT DATE: 20250801
